FAERS Safety Report 8613722-3 (Version None)
Quarter: 2012Q3

REPORT INFORMATION
  Report Type: 
  Country: None (occurrence: None)
  Receive Date: 20120823
  Receipt Date: 20120816
  Transmission Date: 20120928
  Serious: No
  Sender: FDA-Public Use
  Company Number: US-BIOGENIDEC-2011BI043190

PATIENT
  Sex: Female

DRUGS (3)
  1. TYSABRI [Suspect]
     Indication: MULTIPLE SCLEROSIS
     Route: 042
     Dates: start: 20110916
  2. TYSABRI [Suspect]
     Route: 042
     Dates: start: 20111202
  3. TYSABRI [Suspect]
     Route: 042
     Dates: start: 20111230

REACTIONS (7)
  - BONE DENSITY DECREASED [None]
  - MULTIPLE SCLEROSIS RELAPSE [None]
  - BLOOD CHOLESTEROL INCREASED [None]
  - OSTEOPOROSIS [None]
  - HEADACHE [None]
  - BLOOD TRIGLYCERIDES INCREASED [None]
  - DEPRESSION [None]
